FAERS Safety Report 25170751 (Version 1)
Quarter: 2025Q2

REPORT INFORMATION
  Report Type: Spontaneous
  Country: GB (occurrence: GB)
  Receive Date: 20250408
  Receipt Date: 20250408
  Transmission Date: 20250717
  Serious: Yes (Other)
  Sender: CSL BEHRING
  Company Number: GB-BEH-2025201249

PATIENT
  Sex: Female

DRUGS (3)
  1. BERINERT [Suspect]
     Active Substance: HUMAN C1-ESTERASE INHIBITOR
     Indication: Product used for unknown indication
     Route: 065
  2. BERINERT [Suspect]
     Active Substance: HUMAN C1-ESTERASE INHIBITOR
     Indication: Product used for unknown indication
     Route: 065
  3. ICATIBANT [Concomitant]
     Active Substance: ICATIBANT ACETATE
     Route: 058

REACTIONS (2)
  - Dental operation [Not Recovered/Not Resolved]
  - Unevaluable event [Not Recovered/Not Resolved]
